FAERS Safety Report 13741835 (Version 2)
Quarter: 2018Q1

REPORT INFORMATION
  Report Type: Spontaneous
  Country: US (occurrence: US)
  Receive Date: 20170711
  Receipt Date: 20180222
  Transmission Date: 20180508
  Serious: No
  Sender: FDA-Public Use
  Company Number: US-PFIZER INC-2017298463

PATIENT
  Age: 34 Year
  Sex: Female

DRUGS (1)
  1. METHOTREXATE SODIUM. [Suspect]
     Active Substance: METHOTREXATE SODIUM
     Dosage: UNK

REACTIONS (7)
  - Malaise [Unknown]
  - Musculoskeletal stiffness [Unknown]
  - Abdominal discomfort [Unknown]
  - Joint swelling [Unknown]
  - Drug intolerance [Unknown]
  - Arthralgia [Unknown]
  - Peripheral swelling [Unknown]
